FAERS Safety Report 6190429-6 (Version None)
Quarter: 2009Q2

REPORT INFORMATION
  Report Type: 
  Country: None (occurrence: None)
  Receive Date: 20090514
  Receipt Date: 20090511
  Transmission Date: 20091009
  Serious: Yes (Other)
  Sender: FDA-Public Use
  Company Number: GR-BRISTOL-MYERS SQUIBB COMPANY-14623011

PATIENT
  Age: 81 Year
  Sex: Female

DRUGS (2)
  1. HYDROXYCARBAMIDE [Suspect]
     Indication: THROMBOCYTHAEMIA
  2. ANAGRELIDE HCL [Suspect]
     Indication: THROMBOCYTHAEMIA
     Dosage: 1DF=MEAN DAILY DOSE .64MG

REACTIONS (4)
  - ANAEMIA [None]
  - GENE MUTATION [None]
  - NEUTROPENIA [None]
  - PULMONARY OEDEMA [None]
